FAERS Safety Report 14634066 (Version 1)
Quarter: 2018Q1

REPORT INFORMATION
  Report Type: Spontaneous
  Country: US (occurrence: US)
  Receive Date: 20180314
  Receipt Date: 20180314
  Transmission Date: 20180509
  Serious: No
  Sender: FDA-Public Use
  Company Number: US-009507513-1803USA005639

PATIENT
  Sex: Female

DRUGS (1)
  1. BELSOMRA [Suspect]
     Active Substance: SUVOREXANT
     Indication: INSOMNIA
     Dosage: 2.5 MG, QD
     Route: 048

REACTIONS (3)
  - Wrong technique in product usage process [Unknown]
  - No adverse event [Unknown]
  - Drug prescribing error [Unknown]
